FAERS Safety Report 19412648 (Version 1)
Quarter: 2021Q2

REPORT INFORMATION
  Report Type: Report from Study
  Country: ZA (occurrence: ZA)
  Receive Date: 20210614
  Receipt Date: 20210614
  Transmission Date: 20210717
  Serious: Yes (Death)
  Sender: FDA-Public Use
  Company Number: ZA-ASTRAZENECA-2021A510494

PATIENT
  Age: 995 Month
  Sex: Male

DRUGS (8)
  1. FORXIGA [Suspect]
     Active Substance: DAPAGLIFLOZIN
     Indication: TYPE 2 DIABETES MELLITUS
     Route: 048
  2. ADCO?SIMVASTATIN [Concomitant]
     Active Substance: SIMVASTATIN
  3. JALRA [Concomitant]
     Active Substance: VILDAGLIPTIN
  4. PURICOS [Concomitant]
     Active Substance: ALLOPURINOL
  5. DIAGLUCIDE MR [Concomitant]
     Active Substance: GLICLAZIDE
  6. AMLATE [Concomitant]
  7. CARZIN XL [Concomitant]
     Active Substance: DOXAZOSIN MESYLATE
  8. LORIEN [Concomitant]
     Active Substance: FLUOXETINE HYDROCHLORIDE

REACTIONS (1)
  - Death [Fatal]

NARRATIVE: CASE EVENT DATE: 202101
